FAERS Safety Report 6005435-1 (Version None)
Quarter: 2008Q4

REPORT INFORMATION
  Report Type: 
  Country: None (occurrence: None)
  Receive Date: 20081217
  Receipt Date: 20081215
  Transmission Date: 20090506
  Serious: Yes (Death)
  Sender: FDA-Public Use
  Company Number: CO-JNJFOC-20081203951

PATIENT
  Age: 82 Year
  Sex: Male

DRUGS (3)
  1. SPORANOX [Suspect]
     Indication: ONYCHOMYCOSIS
     Dosage: 3 PULSES, 1 MONTH OF INTERVAL WITHOUT MEDICATION
     Route: 065
  2. INHALERS [Concomitant]
     Route: 065
  3. SOMESE [Concomitant]
     Route: 065

REACTIONS (2)
  - LARYNGEAL CANCER [None]
  - SOMNOLENCE [None]
